FAERS Safety Report 5024241-8 (Version None)
Quarter: 2006Q2

REPORT INFORMATION
  Report Type: 
  Country: None (occurrence: None)
  Receive Date: 20060607
  Receipt Date: 20060518
  Transmission Date: 20061013
  Serious: Yes (Hospitalization)
  Sender: FDA-Public Use
  Company Number: AT200605004336

PATIENT
  Sex: Female

DRUGS (3)
  1. EVISTA [Suspect]
     Indication: OSTEOPOROSIS
     Dosage: 60 MG, DAILY (1/D), ORAL
     Route: 048
     Dates: start: 20040401, end: 20060501
  2. CAL-D-VITA (CALCIUM CARBONATE, COLECALCIFEROL) [Concomitant]
  3. CALCIPOT/GFR/ (CALCIUM CITRATE, CALCIUM PHOSPHATE DIBASIC) [Concomitant]

REACTIONS (3)
  - ERYSIPELAS [None]
  - INFECTION IN AN IMMUNOCOMPROMISED HOST [None]
  - LYMPHADENOPATHY [None]
